FAERS Safety Report 14757945 (Version 1)
Quarter: 2018Q2

REPORT INFORMATION
  Report Type: Spontaneous
  Country: DE (occurrence: DE)
  Receive Date: 20180409
  Receipt Date: 20180409
  Transmission Date: 20180711
  Serious: Yes (Hospitalization, Disabling)
  Sender: FDA-Public Use
  Company Number: None

PATIENT
  Age: 66 Year
  Sex: Male
  Weight: 80 kg

DRUGS (11)
  1. CANDESARTAN 16 MG [Concomitant]
     Active Substance: CANDESARTAN
     Dates: start: 19991231
  2. ACICLOVIR 400 MG [Concomitant]
     Dates: start: 20100531
  3. COTRIMOXAZOL FORTE [Concomitant]
     Active Substance: SULFAMETHOXAZOLE\TRIMETHOPRIM
     Dates: start: 20100531
  4. PANTOZOL [Concomitant]
     Active Substance: PANTOPRAZOLE SODIUM
     Dates: start: 19991231
  5. FRAGMIN 5000 IE S.C./ RIVAROXABAN 20 MG  (SWITCH AFTER BEGIN OF SYMPT) [Concomitant]
     Dates: start: 20180215
  6. MACROGOL [Concomitant]
     Active Substance: POLYETHYLENE GLYCOLS
     Dates: start: 20100531
  7. VENETOCLAX. [Suspect]
     Active Substance: VENETOCLAX
     Indication: CHRONIC LYMPHOCYTIC LEUKAEMIA
     Route: 048
     Dates: start: 20171115, end: 20180227
  8. DIGOXIN 0,25 MG [Concomitant]
     Dates: start: 19991231
  9. HCT 12,5 MG [Concomitant]
     Dates: start: 19991231
  10. L-THYORXIN 25 ?G [Concomitant]
     Dates: start: 19991231
  11. BISOPROLOL 5 MG [Concomitant]
     Active Substance: BISOPROLOL
     Dates: start: 19991231

REACTIONS (1)
  - Progressive multifocal leukoencephalopathy [None]

NARRATIVE: CASE EVENT DATE: 20180125
